FAERS Safety Report 4561480-4 (Version None)
Quarter: 2005Q1

REPORT INFORMATION
  Report Type: 
  Country: None (occurrence: None)
  Receive Date: 20050126
  Receipt Date: 20050119
  Transmission Date: 20050727
  Serious: Yes (Hospitalization)
  Sender: FDA-Public Use
  Company Number: PHBS2005IT01255

PATIENT
  Age: 67 Year
  Sex: Female

DRUGS (8)
  1. DILATREND [Concomitant]
     Dosage: FOR 8 DAYS
     Route: 048
  2. ORUDIS [Concomitant]
     Route: 065
  3. LEXOTAN [Concomitant]
     Route: 065
  4. CONTRAMAL [Concomitant]
     Route: 065
  5. NEURONTIN [Concomitant]
     Route: 048
     Dates: start: 20041214, end: 20041221
  6. ASPIRIN [Concomitant]
     Route: 048
     Dates: start: 20041214, end: 20041223
  7. SINVACOR [Concomitant]
     Route: 065
  8. ZOMETA [Suspect]
     Indication: METASTASES TO BONE
     Dosage: 4 MG, ONCE/SINGLE
     Route: 042
     Dates: start: 20041217, end: 20041217

REACTIONS (3)
  - BLOOD CREATININE INCREASED [None]
  - RENAL FAILURE ACUTE [None]
  - RENAL TUBULAR NECROSIS [None]
